FAERS Safety Report 10602522 (Version 1)
Quarter: 2014Q4

REPORT INFORMATION
  Report Type: Spontaneous
  Country: US (occurrence: US)
  Receive Date: 20141124
  Receipt Date: 20141124
  Transmission Date: 20150529
  Serious: No
  Sender: FDA-Public Use
  Company Number: US-GLAXOSMITHKLINE-US2014GSK008885

PATIENT
  Sex: Female

DRUGS (1)
  1. VENTOLIN [Suspect]
     Active Substance: ALBUTEROL SULFATE
     Indication: PRODUCT USED FOR UNKNOWN INDICATION
     Dosage: UNK
     Dates: start: 20100517

REACTIONS (6)
  - Hernia [Unknown]
  - Osteoarthritis [Unknown]
  - Exostosis [Unknown]
  - Scoliosis [Unknown]
  - Cholelithiasis [Unknown]
  - Disability [Unknown]
